FAERS Safety Report 5110794-8 (Version None)
Quarter: 2006Q3

REPORT INFORMATION
  Report Type: 
  Country: None (occurrence: None)
  Receive Date: 20060731
  Receipt Date: 20060608
  Transmission Date: 20061208
  Serious: No
  Sender: FDA-Public Use
  Company Number: 2006PV015297

PATIENT
  Age: 47 Year
  Sex: Female
  Weight: 154.223 kg

DRUGS (9)
  1. BYETTA [Suspect]
     Indication: DIABETES MELLITUS NON-INSULIN-DEPENDENT
     Dosage: 5 MCG;BID;SC
     Route: 058
     Dates: start: 20060607
  2. GLUCOPHAGE [Concomitant]
  3. AMARYL [Concomitant]
  4. LANTUS [Concomitant]
  5. THYROID TAB [Concomitant]
  6. ZENECAR OR BENECAR [Concomitant]
  7. LASIX [Concomitant]
  8. MAXZIDE [Concomitant]
  9. RANITIDINE [Concomitant]

REACTIONS (14)
  - DECREASED APPETITE [None]
  - DIARRHOEA [None]
  - DIZZINESS [None]
  - DRUG EFFECT DECREASED [None]
  - DRUG INEFFECTIVE FOR UNAPPROVED INDICATION [None]
  - DYSGEUSIA [None]
  - FAECAL INCONTINENCE [None]
  - FEELING JITTERY [None]
  - GASTROOESOPHAGEAL REFLUX DISEASE [None]
  - HEART RATE INCREASED [None]
  - MUSCULAR WEAKNESS [None]
  - NAUSEA [None]
  - TREMOR [None]
  - VOMITING [None]
